FAERS Safety Report 13980342 (Version 2)
Quarter: 2017Q3

REPORT INFORMATION
  Report Type: Spontaneous
  Country: SE (occurrence: SE)
  Receive Date: 20170917
  Receipt Date: 20170925
  Transmission Date: 20171128
  Serious: Yes (Other)
  Sender: FDA-Public Use
  Company Number: SE-009507513-1709SWE005264

PATIENT
  Age: 47 Year
  Sex: Female

DRUGS (7)
  1. LEVAXIN [Concomitant]
     Active Substance: LEVOTHYROXINE SODIUM
     Dosage: UNK
  2. TREO COMP [Concomitant]
     Dosage: UNK
  3. NASONEX [Suspect]
     Active Substance: MOMETASONE FUROATE
     Indication: HYPOSMIA
     Dosage: UNK
     Dates: start: 2017
  4. CITODON (ACETAMINOPHEN (+) CODEINE PHOSPHATE) [Concomitant]
     Dosage: UNK
  5. NASONEX [Suspect]
     Active Substance: MOMETASONE FUROATE
     Indication: SNORING
     Dosage: UNK
     Dates: start: 2017, end: 2017
  6. BRINTELLIX [Concomitant]
     Active Substance: VORTIOXETINE HYDROBROMIDE
     Dosage: UNK
  7. OXASCAND [Concomitant]
     Active Substance: OXAZEPAM
     Dosage: UNK

REACTIONS (1)
  - Rash vesicular [Recovered/Resolved]

NARRATIVE: CASE EVENT DATE: 201707
